FAERS Safety Report 12375830 (Version 1)
Quarter: 2016Q2

REPORT INFORMATION
  Report Type: Spontaneous
  Country: US (occurrence: None)
  Receive Date: 20160516
  Receipt Date: 20160516
  Transmission Date: 20160815
  Serious: Yes (Disabling)
  Sender: FDA-Public Use
  Company Number: None

PATIENT
  Age: 45 Year
  Sex: Female
  Weight: 74.84 kg

DRUGS (6)
  1. GLUCOSAMINE [Concomitant]
     Active Substance: GLUCOSAMINE
  2. MAGNESIUM MALATE [Concomitant]
  3. ACTIVE VITAMIN PACK [Concomitant]
  4. CIPRO [Suspect]
     Active Substance: CIPROFLOXACIN HYDROCHLORIDE
     Indication: URINARY TRACT INFECTION
     Route: 048
  5. NSAIDS [Concomitant]
     Active Substance: UNSPECIFIED INGREDIENT
  6. ACETAMINOPHEN. [Concomitant]
     Active Substance: ACETAMINOPHEN

REACTIONS (6)
  - Gait disturbance [None]
  - Tendon disorder [None]
  - Arthralgia [None]
  - Myalgia [None]
  - Muscle tightness [None]
  - Pain in extremity [None]
